FAERS Safety Report 14822240 (Version 5)
Quarter: 2018Q2

REPORT INFORMATION
  Report Type: Spontaneous
  Country: US (occurrence: US)
  Receive Date: 20180427
  Receipt Date: 20180625
  Transmission Date: 20180711
  Serious: Yes (Death, Hospitalization)
  Sender: FDA-Public Use
  Company Number: US-CELGENEUS-USA-20180401889

PATIENT
  Age: 59 Year
  Sex: Female

DRUGS (6)
  1. REVLIMID [Suspect]
     Active Substance: LENALIDOMIDE
     Indication: PLASMA CELL MYELOMA
     Dosage: 25 MILLIGRAM
     Route: 048
     Dates: start: 201703
  2. ATROPINE. [Concomitant]
     Active Substance: ATROPINE
     Indication: SECRETION DISCHARGE
     Dosage: 5 MILLILITER
     Route: 065
     Dates: start: 20180422, end: 20180423
  3. SCOPOLAMINE [Concomitant]
     Active Substance: SCOPOLAMINE
     Indication: NAUSEA
     Dosage: .3333 MILLIGRAM
     Route: 062
     Dates: start: 20180422, end: 20180423
  4. REVLIMID [Suspect]
     Active Substance: LENALIDOMIDE
     Dosage: 10 MILLIGRAM
     Route: 048
     Dates: start: 20180402
  5. MORPHINE [Concomitant]
     Active Substance: MORPHINE
     Indication: PAIN
     Dosage: 150 MILLIGRAM
     Route: 041
     Dates: start: 20180422, end: 20180423
  6. REVLIMID [Suspect]
     Active Substance: LENALIDOMIDE
     Dosage: 10 MILLIGRAM
     Route: 048
     Dates: start: 20180319

REACTIONS (3)
  - Sepsis [Unknown]
  - Multiple organ dysfunction syndrome [Fatal]
  - Pancytopenia [Unknown]

NARRATIVE: CASE EVENT DATE: 20180423
